FAERS Safety Report 21912330 (Version 1)
Quarter: 2023Q1

REPORT INFORMATION
  Report Type: Spontaneous
  Country: US (occurrence: US)
  Receive Date: 20230125
  Receipt Date: 20230125
  Transmission Date: 20230417
  Serious: No
  Sender: FDA-Public Use
  Company Number: US-ALLERGAN-2224907US

PATIENT
  Age: 50 Year
  Sex: Female

DRUGS (2)
  1. BOTOX COSMETIC [Suspect]
     Active Substance: ONABOTULINUMTOXINA
     Indication: Skin wrinkling
     Dosage: 2 UNITS, SINGLE
     Route: 030
     Dates: start: 202207, end: 202207
  2. BOTOX COSMETIC [Suspect]
     Active Substance: ONABOTULINUMTOXINA
     Indication: Skin wrinkling

REACTIONS (10)
  - Wrong technique in product usage process [Unknown]
  - Asthenopia [Unknown]
  - Visual acuity reduced [Unknown]
  - Haematoma [Unknown]
  - Off label use [Unknown]
  - Speech disorder [Unknown]
  - Eyelid ptosis [Unknown]
  - Vision blurred [Unknown]
  - Injection site pain [Unknown]
  - Bell^s palsy [Unknown]

NARRATIVE: CASE EVENT DATE: 20220101
